FAERS Safety Report 12530743 (Version 1)
Quarter: 2016Q3

REPORT INFORMATION
  Report Type: Spontaneous
  Country: GB (occurrence: GB)
  Receive Date: 20160706
  Receipt Date: 20160706
  Transmission Date: 20161109
  Serious: Yes (Other)
  Sender: FDA-Public Use
  Company Number: GB-GALDERMA-GB16004566

PATIENT
  Age: 29 Year
  Sex: Male
  Weight: 83 kg

DRUGS (2)
  1. BRIMONIDINE TARTRATE. [Suspect]
     Active Substance: BRIMONIDINE TARTRATE
     Indication: ROSACEA
     Route: 061
     Dates: start: 20160401, end: 20160402
  2. AZELAID ACID [Concomitant]
     Indication: PRODUCT USED FOR UNKNOWN INDICATION

REACTIONS (3)
  - Rebound effect [Recovered/Resolved]
  - Erythema [Recovered/Resolved]
  - Rosacea [Unknown]

NARRATIVE: CASE EVENT DATE: 20160401
